FAERS Safety Report 7208930-2 (Version None)
Quarter: 2011Q1

REPORT INFORMATION
  Report Type: 
  Country: None (occurrence: None)
  Receive Date: 20110104
  Receipt Date: 20101222
  Transmission Date: 20110831
  Serious: Yes (Hospitalization, Other)
  Sender: FDA-Public Use
  Company Number: US-JNJCH-2010029489

PATIENT
  Age: 56 Year
  Sex: Female
  Weight: 85.3 kg

DRUGS (1)
  1. ROLAIDS EXTRA STRENGTH PLUS GAS RELIEF TROPICAL FRUIT SOFT CHEWS [Suspect]
     Indication: DYSPEPSIA
     Dosage: TEXT:SIX DAILY
     Route: 048
     Dates: start: 20090901, end: 20101213

REACTIONS (6)
  - MYOCARDIAL INFARCTION [None]
  - CONSTIPATION [None]
  - EXPIRED DRUG ADMINISTERED [None]
  - ABDOMINAL PAIN UPPER [None]
  - PRODUCT QUALITY ISSUE [None]
  - INCORRECT DRUG ADMINISTRATION DURATION [None]
